FAERS Safety Report 4816622-X (Version None)
Quarter: 2005Q4

REPORT INFORMATION
  Report Type: 
  Country: None (occurrence: None)
  Receive Date: 20051031
  Receipt Date: 20051031
  Transmission Date: 20060501
  Serious: Yes (Hospitalization)
  Sender: FDA-Public Use
  Company Number: None

PATIENT
  Age: 55 Year
  Sex: Male
  Weight: 64 kg

DRUGS (11)
  1. CISPLATIN [Suspect]
     Indication: NON-SMALL CELL LUNG CANCER
     Dosage: 30 MG/M2 IV
     Route: 042
     Dates: start: 20050920
  2. PEMETREXED [Suspect]
     Indication: NON-SMALL CELL LUNG CANCER
     Dosage: 500MG/M2 IV
     Route: 042
     Dates: start: 20050920
  3. FOLIC ACID [Concomitant]
  4. PAXIL [Concomitant]
  5. CIPRO [Concomitant]
  6. MAGOX [Concomitant]
  7. POTASSIUM CHLORIDE [Concomitant]
  8. COMPAZINE [Concomitant]
  9. PREVACID [Concomitant]
  10. FLUCONAZOLE [Concomitant]
  11. NPH INSULIN [Concomitant]

REACTIONS (6)
  - DEVICE RELATED INFECTION [None]
  - FUNGAL INFECTION [None]
  - PYELONEPHRITIS [None]
  - RENAL DISORDER [None]
  - STENT REMOVAL [None]
  - URINE OUTPUT DECREASED [None]
